FAERS Safety Report 5307948-4 (Version None)
Quarter: 2007Q2

REPORT INFORMATION
  Report Type: 
  Country: None (occurrence: None)
  Receive Date: 20070426
  Receipt Date: 20070413
  Transmission Date: 20071010
  Serious: Yes (Disabling)
  Sender: FDA-Public Use
  Company Number: 2006SE06399

PATIENT
  Age: 56 Year
  Sex: Male
  Weight: 90 kg

DRUGS (4)
  1. CRESTOR [Suspect]
     Indication: MIXED HYPERLIPIDAEMIA
     Route: 048
     Dates: start: 20060501
  2. ECOTRIN [Concomitant]
     Indication: CORONARY ARTERY DISEASE
     Dosage: 81 MG
     Route: 048
     Dates: start: 20040101
  3. ZESTRIL [Concomitant]
     Indication: CORONARY ARTERY DISEASE
     Dosage: 5 MG
     Route: 048
     Dates: start: 20050101
  4. PURICOS [Concomitant]
     Indication: GOUT
     Dosage: 300 MG
     Route: 048
     Dates: start: 19840101

REACTIONS (1)
  - AMNESIA [None]
